FAERS Safety Report 16206459 (Version 1)
Quarter: 2019Q2

REPORT INFORMATION
  Report Type: Spontaneous
  Country: US (occurrence: US)
  Receive Date: 20190416
  Receipt Date: 20190416
  Transmission Date: 20190711
  Serious: Yes (Death)
  Sender: FDA-Public Use
  Company Number: None

PATIENT
  Age: 84 Year
  Sex: Female

DRUGS (7)
  1. ASPIRIN, CALCIUM, FUROSEMIDE [Concomitant]
  2. LETROZOLE. [Suspect]
     Active Substance: LETROZOLE
     Indication: BREAST CANCER FEMALE
     Route: 048
     Dates: start: 20170126, end: 20190415
  3. TYLENOL, VITAMIN B12 [Concomitant]
  4. POTASSIMIN, QUINAPRIL, TRAMADOL [Concomitant]
  5. IBRANCE [Suspect]
     Active Substance: PALBOCICLIB
     Indication: BREAST CANCER FEMALE
     Dosage: ?          OTHER FREQUENCY:DAILY FOR 21 DAYS;?
     Route: 048
     Dates: start: 20170126, end: 20190415
  6. GLIMEPIRIDE, LEVOTHYROXIN, OMEPRAZOLE [Concomitant]
  7. VITAMIN D3, XGEVA [Concomitant]

REACTIONS (1)
  - Death [None]

NARRATIVE: CASE EVENT DATE: 20190415
